FAERS Safety Report 17070630 (Version 1)
Quarter: 2019Q4

REPORT INFORMATION
  Report Type: Spontaneous
  Country: US (occurrence: US)
  Receive Date: 20191025
  Receipt Date: 20191025
  Transmission Date: 20200122
  Serious: No
  Sender: FDA-Public Use
  Company Number: None

PATIENT
  Age: 62 Year
  Sex: Female

DRUGS (1)
  1. DALFAMPRIDINE 10MG ER TAB [Suspect]
     Active Substance: DALFAMPRIDINE
     Route: 048
     Dates: start: 201909, end: 201910

REACTIONS (3)
  - Dizziness [None]
  - Feeling abnormal [None]
  - Therapeutic product effect decreased [None]

NARRATIVE: CASE EVENT DATE: 20191001
